FAERS Safety Report 6864493-2 (Version None)
Quarter: 2010Q3

REPORT INFORMATION
  Report Type: 
  Country: None (occurrence: None)
  Receive Date: 20100721
  Receipt Date: 20080325
  Transmission Date: 20110219
  Serious: No
  Sender: FDA-Public Use
  Company Number: US-PFIZER INC-2008027645

PATIENT
  Sex: Female
  Weight: 95.3 kg

DRUGS (2)
  1. CHANTIX [Suspect]
     Indication: SMOKING CESSATION THERAPY
     Route: 048
     Dates: start: 20080101, end: 20080201
  2. DRUG, UNSPECIFIED [Concomitant]
     Indication: THYROID DISORDER

REACTIONS (5)
  - CHEST DISCOMFORT [None]
  - DYSPEPSIA [None]
  - FEELING ABNORMAL [None]
  - FLATULENCE [None]
  - SLEEP DISORDER [None]
